FAERS Safety Report 8216832-8 (Version None)
Quarter: 2012Q1

REPORT INFORMATION
  Report Type: 
  Country: None (occurrence: None)
  Receive Date: 20120316
  Receipt Date: 20120306
  Transmission Date: 20120608
  Serious: Yes (Other)
  Sender: FDA-Public Use
  Company Number: US-RB-037361-12

PATIENT
  Age: 57 Year
  Sex: Male

DRUGS (6)
  1. GABAPENTIN [Concomitant]
     Indication: NERVOUS SYSTEM DISORDER
     Dosage: UNKNOWN
     Route: 065
  2. MIRTAZAPINE [Concomitant]
     Indication: SLEEP DISORDER
     Dosage: UNKNOWN
     Route: 065
  3. SIMVASTATIN [Concomitant]
     Indication: BLOOD CHOLESTEROL INCREASED
     Dosage: UNKNOWN
     Route: 065
  4. PREVACID [Concomitant]
     Indication: BARRETT'S OESOPHAGUS
     Dosage: UNKNOWN
     Route: 065
  5. SUBOXONE [Suspect]
     Indication: DRUG DEPENDENCE
     Dosage: UNIT DOSE 8 MG AND 2 MG
     Route: 060
     Dates: start: 20080101, end: 20120201
  6. WELLBUTRIN [Concomitant]
     Indication: DEPRESSION
     Dosage: UNKNOWN
     Route: 065

REACTIONS (5)
  - NAUSEA [None]
  - DIARRHOEA [None]
  - INTRADUCTAL PAPILLARY MUCINOUS NEOPLASM [None]
  - PANCREATIC DISORDER [None]
  - ABDOMINAL PAIN [None]
